FAERS Safety Report 7457879-9 (Version None)
Quarter: 2011Q2

REPORT INFORMATION
  Report Type: 
  Country: None (occurrence: None)
  Receive Date: 20110504
  Receipt Date: 20110421
  Transmission Date: 20111010
  Serious: No
  Sender: FDA-Public Use
  Company Number: US-B.I. PHARMACEUTICALS,INC./RIDGEFIELD-2011-BP-03159BP

PATIENT
  Sex: Female

DRUGS (16)
  1. ZOCOR [Concomitant]
     Indication: BLOOD CHOLESTEROL INCREASED
     Dosage: 80 MG
     Dates: start: 20070101
  2. FUROSEMIDE [Concomitant]
     Indication: CHRONIC OBSTRUCTIVE PULMONARY DISEASE
  3. FUROSEMIDE [Concomitant]
     Indication: CARDIAC DISORDER
  4. K+ SUPPL [Concomitant]
     Indication: CARDIAC FAILURE CONGESTIVE
     Dosage: 80 MG
  5. ENALAPRIL [Concomitant]
     Indication: CARDIAC DISORDER
  6. FUROSEMIDE [Concomitant]
     Indication: CARDIAC FAILURE CONGESTIVE
     Dosage: 80 MG
  7. OXYGEN [Concomitant]
  8. PRADAXA [Suspect]
     Indication: ATRIAL FIBRILLATION
     Dosage: 300 MG
     Route: 048
     Dates: start: 20101101
  9. MULTAQ [Suspect]
     Indication: ATRIAL FIBRILLATION
  10. ENALAPRIL [Concomitant]
     Indication: HYPERTENSION
     Dosage: 5 MG
     Dates: start: 20100901
  11. K+ SUPPL [Concomitant]
     Indication: CHRONIC OBSTRUCTIVE PULMONARY DISEASE
  12. MULTAQ [Suspect]
     Indication: ARRHYTHMIA PROPHYLAXIS
     Dosage: 800 MG
     Dates: start: 20101001
  13. PRADAXA [Suspect]
     Indication: CARDIAC FAILURE CONGESTIVE
  14. JANUMET [Concomitant]
     Indication: TYPE 2 DIABETES MELLITUS
  15. K+ SUPPL [Concomitant]
     Indication: CARDIAC DISORDER
  16. VITAMIN D [Concomitant]
     Dosage: 1000 U

REACTIONS (6)
  - WEIGHT DECREASED [None]
  - NAUSEA [None]
  - FEELING COLD [None]
  - GOUT [None]
  - HYPOTENSION [None]
  - ABDOMINAL PAIN UPPER [None]
